FAERS Safety Report 11552994 (Version 1)
Quarter: 2015Q3

REPORT INFORMATION
  Report Type: Spontaneous
  Country: US (occurrence: None)
  Receive Date: 20150924
  Receipt Date: 20150924
  Transmission Date: 20151125
  Serious: No
  Sender: FDA-Public Use
  Company Number: None

PATIENT
  Age: 61 Year
  Sex: Male

DRUGS (12)
  1. LORATADINE. [Concomitant]
     Active Substance: LORATADINE
  2. SANDOSTATIN [Concomitant]
     Active Substance: OCTREOTIDE ACETATE
  3. IRON [Concomitant]
     Active Substance: IRON
  4. ZOMETA [Concomitant]
     Active Substance: ZOLEDRONIC ACID
  5. FISH OIL [Concomitant]
     Active Substance: FISH OIL
  6. VITAMIN D [Concomitant]
     Active Substance: CHOLECALCIFEROL
  7. FOLIC ACID. [Concomitant]
     Active Substance: FOLIC ACID
  8. HUMULIN NOS [Concomitant]
     Active Substance: INSULIN HUMAN
  9. AFINITOR [Suspect]
     Active Substance: EVEROLIMUS
     Indication: NEUROENDOCRINE CARCINOMA
     Route: 048
     Dates: start: 20130626, end: 20150828
  10. HUMALOG [Concomitant]
     Active Substance: INSULIN LISPRO
  11. HCTZ/TRAIM [Concomitant]
  12. LEVOTHYROXIN [Concomitant]
     Active Substance: LEVOTHYROXINE

REACTIONS (7)
  - Fatigue [None]
  - Muscular weakness [None]
  - Night sweats [None]
  - Decreased appetite [None]
  - Condition aggravated [None]
  - Abdominal pain upper [None]
  - Abdominal distension [None]

NARRATIVE: CASE EVENT DATE: 20150828
